FAERS Safety Report 8070291-7 (Version None)
Quarter: 2012Q1

REPORT INFORMATION
  Report Type: 
  Country: None (occurrence: None)
  Receive Date: 20120125
  Receipt Date: 20120110
  Transmission Date: 20120608
  Serious: Yes (Death, Hospitalization)
  Sender: FDA-Public Use
  Company Number: BE-ROCHE-679184

PATIENT
  Sex: Male
  Weight: 76.25 kg

DRUGS (24)
  1. EXFORGE [Concomitant]
     Dosage: TDD:10/160 MG
     Dates: start: 20091203, end: 20100112
  2. SULFAMETHOXAZOLE AND TRIMETHOPRIM DOUBLE STRENGTH [Concomitant]
     Dates: start: 20100106, end: 20100112
  3. ACETAMINOPHEN [Concomitant]
     Dosage: SOS
     Dates: start: 20100111, end: 20100122
  4. METHYLPREDNISOLONE [Concomitant]
     Dates: start: 20091209, end: 20100111
  5. ENOXAPARIN [Concomitant]
     Dates: start: 20100114, end: 20100117
  6. METOPROLOL TARTRATE [Concomitant]
     Dates: start: 20100120, end: 20100120
  7. METOPROLOL TARTRATE [Concomitant]
     Dates: start: 20100121, end: 20100121
  8. BISOPROLOL [Concomitant]
     Dates: start: 20091203, end: 20100120
  9. LORMETAZEPAM [Concomitant]
     Dates: start: 20091223, end: 20100111
  10. ALPRAZOLAM [Concomitant]
     Dates: start: 20100111, end: 20100120
  11. MOREFINE [Concomitant]
     Dates: start: 20100120, end: 20100122
  12. TEMOZOLOMIDE [Suspect]
     Indication: GLIOBLASTOMA
     Route: 048
     Dates: start: 20091215, end: 20100112
  13. METHYLPREDNISOLONE [Concomitant]
     Dates: start: 20100112, end: 20100120
  14. LEVETIRACETAM [Concomitant]
     Dates: start: 20091106, end: 20100120
  15. LORAZEPAM [Concomitant]
     Dates: start: 20100111, end: 20100120
  16. ESCITALOPRAM [Concomitant]
     Dates: start: 20100118, end: 20100120
  17. SODIUM PICOSULFATE [Concomitant]
     Dosage: DRUG NAME:PICOSULFAAT
     Dates: start: 20100118, end: 20100118
  18. DOMPERIDON [Concomitant]
     Dates: start: 20100118, end: 20100119
  19. TRAMADOL HCL [Concomitant]
     Dosage: SOS
     Dates: start: 20100111, end: 20100122
  20. TRAMADOL HCL [Concomitant]
     Dosage: SOS (AS REQUIRED)
     Dates: start: 20100118, end: 20100122
  21. AVASTIN [Suspect]
     Indication: GLIOBLASTOMA
     Dosage: FORM:VIAL.
     Route: 042
     Dates: start: 20091215, end: 20100120
  22. TEMOZOLOMIDE [Suspect]
     Dosage: FORM:GELUCES, QD.
     Route: 048
     Dates: start: 20091215, end: 20100112
  23. ENOXAPARIN [Concomitant]
     Dates: start: 20100120, end: 20100122
  24. KABIVEN [Concomitant]
     Dosage: DRUG NAME: PARENTERAL NUTRITION
     Dates: start: 20100114, end: 20100120

REACTIONS (10)
  - INFLAMMATORY BOWEL DISEASE [None]
  - NEUTROPHIL COUNT INCREASED [None]
  - LYMPHOCYTE COUNT DECREASED [None]
  - DIVERTICULUM INTESTINAL [None]
  - ALANINE AMINOTRANSFERASE INCREASED [None]
  - LARGE INTESTINE PERFORATION [None]
  - BLOOD ALKALINE PHOSPHATASE INCREASED [None]
  - DIVERTICULITIS [None]
  - BLOOD CALCIUM DECREASED [None]
  - GAMMA-GLUTAMYLTRANSFERASE INCREASED [None]
